FAERS Safety Report 6324001-1 (Version None)
Quarter: 2009Q3

REPORT INFORMATION
  Report Type: 
  Country: None (occurrence: None)
  Receive Date: 20090824
  Receipt Date: 20090817
  Transmission Date: 20100115
  Serious: Yes (Hospitalization)
  Sender: FDA-Public Use
  Company Number: B0588206A

PATIENT
  Sex: Female

DRUGS (11)
  1. LAMICTAL [Suspect]
     Indication: BIPOLAR DISORDER
     Route: 065
     Dates: start: 20041001, end: 20090101
  2. LITHIUM CARBONATE [Suspect]
     Indication: DRUG USE FOR UNKNOWN INDICATION
     Route: 065
     Dates: start: 19970101, end: 20090101
  3. SEROQUEL [Suspect]
     Indication: DRUG USE FOR UNKNOWN INDICATION
     Route: 065
     Dates: start: 20060601, end: 20090101
  4. TRYPTIZOL [Suspect]
     Indication: DRUG USE FOR UNKNOWN INDICATION
     Route: 065
     Dates: end: 20051201
  5. ZYPREXA [Suspect]
     Indication: DRUG USE FOR UNKNOWN INDICATION
     Route: 065
     Dates: end: 20060601
  6. EFFEXOR [Suspect]
     Indication: DRUG USE FOR UNKNOWN INDICATION
     Route: 065
     Dates: start: 20051201, end: 20090101
  7. MIANSERIN [Suspect]
     Indication: SLEEP DISORDER
  8. LITHIONIT [Suspect]
     Indication: DRUG USE FOR UNKNOWN INDICATION
     Route: 065
  9. IMOVANE [Concomitant]
     Indication: DRUG USE FOR UNKNOWN INDICATION
     Route: 065
  10. CYMBALTA [Concomitant]
     Indication: DRUG USE FOR UNKNOWN INDICATION
     Route: 065
     Dates: start: 20070601, end: 20090101
  11. SONATA [Concomitant]
     Indication: DRUG USE FOR UNKNOWN INDICATION
     Dosage: 10MG AT NIGHT
     Route: 065

REACTIONS (34)
  - ANAL PRURITUS [None]
  - ANXIETY [None]
  - BALANCE DISORDER [None]
  - COLON NEOPLASM [None]
  - COORDINATION ABNORMAL [None]
  - DEPRESSION [None]
  - DIARRHOEA [None]
  - DIPLOPIA [None]
  - DISABILITY [None]
  - DISTURBANCE IN ATTENTION [None]
  - DRUG INEFFECTIVE [None]
  - DRUG INTERACTION [None]
  - FATIGUE [None]
  - FEELING ABNORMAL [None]
  - FOOD CRAVING [None]
  - GAIT DISTURBANCE [None]
  - GINGIVAL DISORDER [None]
  - HYPERHIDROSIS [None]
  - HYPOAESTHESIA [None]
  - HYPOMANIA [None]
  - LISTLESS [None]
  - MENTAL DISORDER [None]
  - NEUROPATHY PERIPHERAL [None]
  - PAIN IN EXTREMITY [None]
  - POLYP [None]
  - RASH PAPULAR [None]
  - RESTLESSNESS [None]
  - SENSORY LOSS [None]
  - SUICIDAL IDEATION [None]
  - TREATMENT NONCOMPLIANCE [None]
  - TREMOR [None]
  - VISION BLURRED [None]
  - WEIGHT INCREASED [None]
  - WITHDRAWAL SYNDROME [None]
